FAERS Safety Report 8078557-1 (Version None)
Quarter: 2012Q1

REPORT INFORMATION
  Report Type: 
  Country: None (occurrence: None)
  Receive Date: 20120123
  Receipt Date: 20120113
  Transmission Date: 20120608
  Serious: Yes (Life-Threatening, Hospitalization)
  Sender: FDA-Public Use
  Company Number: AUR-APL-2011-05569

PATIENT
  Age: 78 Year
  Sex: Male

DRUGS (7)
  1. METOPROLOL SUCCINATE [Concomitant]
  2. METFORMIN HCL [Suspect]
     Indication: DIABETES MELLITUS
     Dosage: 2000 MG (1000 MG, 2 IN 1D),ORAL
     Route: 048
     Dates: start: 20090101, end: 20111007
  3. AMARYL [Concomitant]
  4. TENOFOVIR DISOPROXIL FUMARATE (VIREAD) [Suspect]
     Indication: HIV INFECTION
     Dosage: 245 MG (245 MG,1 IN 1 D),ORAL
     Route: 048
     Dates: start: 20110511, end: 20111007
  5. CENTYL MED KALIUMKLORID (SALURES-K) [Concomitant]
  6. EFAVIRENZ [Concomitant]
  7. EPIVIR [Concomitant]

REACTIONS (3)
  - LACTIC ACIDOSIS [None]
  - RENAL FAILURE [None]
  - HAEMODIALYSIS [None]
